FAERS Safety Report 20130461 (Version 1)
Quarter: 2021Q4

REPORT INFORMATION
  Report Type: Report from Study
  Country: GB (occurrence: GB)
  Receive Date: 20211130
  Receipt Date: 20211130
  Transmission Date: 20220303
  Serious: Yes (Other)
  Sender: FDA-Public Use
  Company Number: GB-MYLANLABS-2021M1088705

PATIENT
  Age: 4 Hour
  Sex: Female

DRUGS (3)
  1. SILDENAFIL [Suspect]
     Active Substance: SILDENAFIL
     Indication: Prophylaxis
     Dosage: 0.1 MILLIGRAM/KILOGRAM, 0.1 MG/KG OVER 30 MINUTES : LOADING
     Route: 042
  2. SILDENAFIL [Suspect]
     Active Substance: SILDENAFIL
     Dosage: 0.03 MILLIGRAM/KILOGRAM, QH, MAINTENANCE DOSE OF 0.03 MG/KG/H
     Route: 042
  3. NITRIC OXIDE [Concomitant]
     Active Substance: NITRIC OXIDE
     Indication: Product used for unknown indication
     Dosage: 10-20 PPM, RESPIRATORY (INHALATION)

REACTIONS (2)
  - Hypotension [Recovered/Resolved]
  - Off label use [Unknown]
